FAERS Safety Report 9694545 (Version 1)
Quarter: 2013Q4

REPORT INFORMATION
  Report Type: Spontaneous
  Country: US (occurrence: US)
  Receive Date: 20131118
  Receipt Date: 20131118
  Transmission Date: 20140711
  Serious: Yes (Other)
  Sender: FDA-Public Use
  Company Number: US-SANOFI-AVENTIS-2013SA094282

PATIENT
  Age: 38 Year
  Sex: Male

DRUGS (3)
  1. ZALTRAP [Suspect]
     Route: 065
  2. 5-FU [Suspect]
     Route: 065
  3. LEUCOVORIN [Suspect]
     Route: 065

REACTIONS (2)
  - Malignant neoplasm progression [Unknown]
  - Neoplasm malignant [Unknown]
